FAERS Safety Report 8277445-5 (Version None)
Quarter: 2012Q2

REPORT INFORMATION
  Report Type: 
  Country: None (occurrence: None)
  Receive Date: 20120412
  Receipt Date: 20120406
  Transmission Date: 20120825
  Serious: Yes (Hospitalization)
  Sender: FDA-Public Use
  Company Number: US-PFIZER INC-2012005102

PATIENT
  Sex: Male
  Weight: 98.5 kg

DRUGS (14)
  1. ACETAMINOPHEN [Concomitant]
     Indication: PAIN
     Dosage: UNK
     Dates: start: 20101029
  2. ACETYLSALICYLIC ACID [Concomitant]
     Dosage: UNK
     Dates: start: 20101024
  3. LASIX [Concomitant]
     Dosage: UNK
     Dates: start: 20101002
  4. LEVOFLOXACIN [Concomitant]
     Indication: PROPHYLAXIS
     Dosage: UNK
     Dates: start: 20101029
  5. METOPROLOL TARTRATE [Concomitant]
     Indication: HYPERTENSION
     Dosage: UNK
     Dates: start: 20101101
  6. OXYCODONE [Concomitant]
     Indication: PAIN
     Dosage: UNK
     Dates: start: 20101101
  7. DOXORUBICIN HCL [Suspect]
     Indication: SARCOMA
     Dosage: 155 MG, UNK
     Dates: start: 20110928
  8. FLOMAX [Concomitant]
     Dosage: UNK
     Dates: start: 20101101
  9. CALCIUM [Concomitant]
     Indication: SUPPORTIVE CARE
     Dosage: UNK
     Dates: start: 20101029
  10. DUONEB [Concomitant]
     Dosage: UNK
     Dates: start: 20101029
  11. POTASSIUM CHLORIDE [Concomitant]
     Indication: SUPPORTIVE CARE
     Dosage: UNK
     Dates: start: 20101029
  12. THIAMINE HYDROCHLORIDE [Concomitant]
     Indication: SUPPORTIVE CARE
     Dosage: UNK
     Dates: start: 20101029
  13. LOSARTAN [Concomitant]
     Indication: HYPERTENSION
     Dosage: UNK
     Dates: start: 20101024
  14. OMEPRAZOLE [Concomitant]
     Dosage: UNK
     Dates: start: 20101029

REACTIONS (4)
  - DIARRHOEA [None]
  - HYPOKALAEMIA [None]
  - BLOOD CREATININE INCREASED [None]
  - HYPOTENSION [None]
